FAERS Safety Report 16085916 (Version 1)
Quarter: 2019Q1

REPORT INFORMATION
  Report Type: Spontaneous
  Country: US (occurrence: US)
  Receive Date: 20190318
  Receipt Date: 20190318
  Transmission Date: 20190418
  Serious: No
  Sender: FDA-Public Use
  Company Number: US-PFIZER INC-2019106414

PATIENT
  Age: 75 Year
  Sex: Female

DRUGS (2)
  1. LORATADINE. [Suspect]
     Active Substance: LORATADINE
     Dosage: UNK
  2. METHYLENE BLUE. [Suspect]
     Active Substance: METHYLENE BLUE
     Dosage: UNK

REACTIONS (1)
  - Drug hypersensitivity [Unknown]
